FAERS Safety Report 21029050 (Version 1)
Quarter: 2022Q2

REPORT INFORMATION
  Report Type: Spontaneous
  Country: US (occurrence: US)
  Receive Date: 20220630
  Receipt Date: 20220630
  Transmission Date: 20220720
  Serious: No
  Sender: FDA-Public Use
  Company Number: US-SA-SAC20220624000147

PATIENT
  Age: 12 Year
  Sex: Female

DRUGS (8)
  1. DUPIXENT [Suspect]
     Active Substance: DUPILUMAB
     Indication: Dermatitis atopic
     Dosage: 200 MG, QOW
     Route: 058
     Dates: start: 20220128
  2. VITAMINS [Concomitant]
     Active Substance: VITAMINS
     Indication: Erythema
  3. VITAMINS [Concomitant]
     Active Substance: VITAMINS
     Indication: Hypersensitivity
  4. CLOBETASOL PROPIONATE [Concomitant]
     Active Substance: CLOBETASOL PROPIONATE
     Indication: Erythema
  5. CLOBETASOL PROPIONATE [Concomitant]
     Active Substance: CLOBETASOL PROPIONATE
     Indication: Hypersensitivity
  6. TACROLIMUS [Concomitant]
     Active Substance: TACROLIMUS
     Indication: Erythema
  7. TACROLIMUS [Concomitant]
     Active Substance: TACROLIMUS
     Indication: Hypersensitivity
  8. LACTOSE [Concomitant]
     Active Substance: LACTOSE

REACTIONS (2)
  - Hypersensitivity [Unknown]
  - Erythema [Unknown]

NARRATIVE: CASE EVENT DATE: 20220101
